FAERS Safety Report 14233742 (Version 1)
Quarter: 2017Q4

REPORT INFORMATION
  Report Type: Spontaneous
  Country: US (occurrence: US)
  Receive Date: 20171129
  Receipt Date: 20171129
  Transmission Date: 20180321
  Serious: Yes (Other)
  Sender: FDA-Public Use
  Company Number: US-PFIZER INC-2017509762

PATIENT
  Age: 17 Year
  Sex: Female
  Weight: 88 kg

DRUGS (1)
  1. DEPO-PROVERA [Suspect]
     Active Substance: MEDROXYPROGESTERONE ACETATE
     Indication: CONTRACEPTION
     Dosage: UNK, EVERY 3 MONTHS

REACTIONS (9)
  - Amenorrhoea [Unknown]
  - Erythema [Unknown]
  - Breast enlargement [Unknown]
  - Productive cough [Unknown]
  - Blood pressure increased [Unknown]
  - Breast pain [Unknown]
  - Limb injury [Unknown]
  - Sputum discoloured [Unknown]
  - Liver disorder [Unknown]

NARRATIVE: CASE EVENT DATE: 201711
